FAERS Safety Report 6035865-3 (Version None)
Quarter: 2009Q1

REPORT INFORMATION
  Report Type: 
  Country: None (occurrence: None)
  Receive Date: 20090113
  Receipt Date: 20090107
  Transmission Date: 20090719
  Serious: Yes (Other)
  Sender: FDA-Public Use
  Company Number: US-BAYER-200713626BWH

PATIENT
  Age: 78 Year
  Sex: Male

DRUGS (10)
  1. NEXAVAR [Suspect]
     Indication: RENAL CELL CARCINOMA
     Dosage: TOTAL DAILY DOSE: 400 MG  UNIT DOSE: 200 MG
     Route: 048
     Dates: start: 20071005
  2. NEXAVAR [Suspect]
     Dosage: TOTAL DAILY DOSE: 800 MG  UNIT DOSE: 200 MG
     Route: 048
     Dates: start: 20070914, end: 20070928
  3. BLOOD PRESSURE MEDICATION (NOS) [Concomitant]
  4. CALCIUM [Concomitant]
     Indication: BLOOD CALCIUM DECREASED
  5. CALCIUM [Concomitant]
  6. CALCIUM [Concomitant]
  7. VOLTAREN [Concomitant]
  8. WATER PILL (NOS) [Concomitant]
  9. FISH OIL [Concomitant]
  10. SUBSTANCE SIMILAR TO METAMUCIL [Concomitant]

REACTIONS (17)
  - ABDOMINAL PAIN UPPER [None]
  - BLISTER [None]
  - BLOOD PRESSURE INCREASED [None]
  - BLOOD PRESSURE SYSTOLIC INCREASED [None]
  - COAGULOPATHY [None]
  - DECREASED APPETITE [None]
  - DIARRHOEA [None]
  - DRY SKIN [None]
  - HERNIA [None]
  - HYPERKERATOSIS [None]
  - MEDICATION RESIDUE [None]
  - MUSCLE SPASMS [None]
  - OEDEMA PERIPHERAL [None]
  - RASH [None]
  - SKIN EXFOLIATION [None]
  - VOMITING [None]
  - WEIGHT DECREASED [None]
